FAERS Safety Report 16420175 (Version 1)
Quarter: 2019Q2

REPORT INFORMATION
  Report Type: Spontaneous
  Country: FR (occurrence: FR)
  Receive Date: 20190612
  Receipt Date: 20190612
  Transmission Date: 20190711
  Serious: Yes (Hospitalization)
  Sender: FDA-Public Use
  Company Number: PHHY2019FR132641

PATIENT
  Age: 43 Year
  Sex: Male
  Weight: 72 kg

DRUGS (3)
  1. SPASFON LYOC [Suspect]
     Active Substance: PHLOROGLUCINOL
     Indication: GASTROENTERITIS
     Dosage: UNK
     Route: 048
  2. SMECTA [Suspect]
     Active Substance: MONTMORILLONITE
     Indication: GASTROENTERITIS
     Dosage: UNK
     Route: 048
  3. PARACETAMOL [Suspect]
     Active Substance: ACETAMINOPHEN
     Indication: GASTROENTERITIS
     Dosage: UNK
     Route: 048

REACTIONS (1)
  - Anaphylactic shock [Recovered/Resolved]

NARRATIVE: CASE EVENT DATE: 20190520
